FAERS Safety Report 7413151-4 (Version None)
Quarter: 2011Q2

REPORT INFORMATION
  Report Type: 
  Country: None (occurrence: None)
  Receive Date: 20110413
  Receipt Date: 20110408
  Transmission Date: 20111010
  Serious: Yes (Hospitalization)
  Sender: FDA-Public Use
  Company Number: US-PFIZER INC-2011070043

PATIENT
  Sex: Male
  Weight: 87 kg

DRUGS (8)
  1. PD-332,991 [Suspect]
     Indication: GLIOBLASTOMA MULTIFORME
     Dosage: 100 MG, 3 WEEKS ON AND 1 WEEK OFF
     Route: 048
     Dates: start: 20110204
  2. DECADRON [Concomitant]
  3. PEPCID [Concomitant]
     Dosage: UNK
     Dates: start: 20110212
  4. LYRICA [Concomitant]
     Dosage: UNK
     Dates: start: 20110318
  5. CLARITIN [Concomitant]
     Dosage: UNK
     Dates: start: 20110304
  6. XALATAN [Concomitant]
  7. AMBIEN [Concomitant]
     Dosage: UNK
     Dates: start: 20110212
  8. CITALOPRAM [Concomitant]
     Dosage: UNK
     Dates: start: 20100901

REACTIONS (3)
  - CONVULSION [None]
  - MUSCULAR WEAKNESS [None]
  - COGNITIVE DISORDER [None]
